FAERS Safety Report 5179653-9 (Version None)
Quarter: 2006Q4

REPORT INFORMATION
  Report Type: 
  Country: None (occurrence: None)
  Receive Date: 20061219
  Receipt Date: 20051206
  Transmission Date: 20070319
  Serious: Yes (Death)
  Sender: FDA-Public Use
  Company Number: US-SHR-US-2005-025992

PATIENT
  Age: 72 Year
  Sex: Female

DRUGS (1)
  1. BETASERON [Suspect]
     Dosage: UNK MIU, UNK
     Route: 058
     Dates: start: 19940408, end: 20051101

REACTIONS (2)
  - DIABETES MELLITUS [None]
  - RENAL FAILURE [None]
